FAERS Safety Report 9305696 (Version 1)
Quarter: 2013Q2

REPORT INFORMATION
  Report Type: Spontaneous
  Country: US (occurrence: US)
  Receive Date: 20130523
  Receipt Date: 20130523
  Transmission Date: 20140414
  Serious: Yes (Hospitalization, Other)
  Sender: FDA-Public Use
  Company Number: US-ELI_LILLY_AND_COMPANY-US201305004957

PATIENT
  Age: 70 Year
  Sex: Female

DRUGS (8)
  1. HUMALOG LISPRO [Suspect]
     Indication: DIABETES MELLITUS
     Dosage: 12 U, TID
  2. LANTUS [Concomitant]
  3. METFORMIN [Concomitant]
  4. LISINOPRIL [Concomitant]
  5. CARVEDILOL [Concomitant]
  6. ISOSORBIDE [Concomitant]
  7. PLAVIX [Concomitant]
  8. PRAVASTATIN [Concomitant]

REACTIONS (8)
  - Myocardial infarction [Recovered/Resolved]
  - Myocardial infarction [Recovered/Resolved]
  - Myocardial infarction [Recovered/Resolved]
  - Myocardial infarction [Recovered/Resolved]
  - Fluid retention [Unknown]
  - Arrhythmia [Unknown]
  - Stent malfunction [Unknown]
  - Stent malfunction [Recovered/Resolved]
